FAERS Safety Report 24920827 (Version 1)
Quarter: 2025Q1

REPORT INFORMATION
  Report Type: Spontaneous
  Country: NL (occurrence: NL)
  Receive Date: 20250204
  Receipt Date: 20250204
  Transmission Date: 20250409
  Serious: Yes (Other)
  Sender: GILEAD
  Company Number: None

PATIENT
  Age: 32 Year
  Sex: Female
  Weight: 47.5 kg

DRUGS (1)
  1. SACITUZUMAB GOVITECAN-HZIY [Suspect]
     Active Substance: SACITUZUMAB GOVITECAN-HZIY
     Indication: Breast cancer
     Dosage: 2 DOSAGE FORM, Q2WK
     Route: 042
     Dates: start: 20241220, end: 20250117

REACTIONS (1)
  - Venoocclusive liver disease [Not Recovered/Not Resolved]
